FAERS Safety Report 4318750-4 (Version None)
Quarter: 2004Q1

REPORT INFORMATION
  Report Type: 
  Country: None (occurrence: None)
  Receive Date: 20040315
  Receipt Date: 20040304
  Transmission Date: 20041129
  Serious: Yes (Death, Life-Threatening)
  Sender: FDA-Public Use
  Company Number: 04P-163-0252715-00

PATIENT
  Age: 44 Year
  Sex: Male

DRUGS (1)
  1. SEVOFLURANE [Suspect]

REACTIONS (4)
  - ATELECTASIS [None]
  - JUGULAR VEIN DISTENSION [None]
  - PULMONARY OEDEMA [None]
  - RESPIRATORY DEPRESSION [None]
